FAERS Safety Report 11804532 (Version 2)
Quarter: 2015Q4

REPORT INFORMATION
  Report Type: Report from Study
  Country: GR (occurrence: GR)
  Receive Date: 20151204
  Receipt Date: 20151208
  Transmission Date: 20160305
  Serious: Yes (Death)
  Sender: FDA-Public Use
  Company Number: PHHY2015GR158086

PATIENT
  Sex: Female

DRUGS (1)
  1. AFINITOR [Suspect]
     Active Substance: EVEROLIMUS
     Indication: NEUROENDOCRINE CARCINOMA METASTATIC
     Route: 065

REACTIONS (2)
  - Drug ineffective [Fatal]
  - Product use issue [Fatal]
